FAERS Safety Report 20733220 (Version 1)
Quarter: 2022Q2

REPORT INFORMATION
  Report Type: Spontaneous
  Country: HR (occurrence: HR)
  Receive Date: 20220421
  Receipt Date: 20220421
  Transmission Date: 20220720
  Serious: Yes (Hospitalization, Other)
  Sender: FDA-Public Use
  Company Number: HR-NOVEN PHARMACEUTICALS, INC.-2022-NOV-HR000332

PATIENT
  Age: 38 Year
  Sex: Female

DRUGS (15)
  1. METHYLPHENIDATE [Suspect]
     Active Substance: METHYLPHENIDATE
     Indication: Depression
     Dosage: 540 MG, DAILY
     Route: 065
  2. METHYLPHENIDATE [Suspect]
     Active Substance: METHYLPHENIDATE
     Indication: Disturbance in attention
     Dosage: 18 MG, DAILY
     Route: 065
  3. METHYLPHENIDATE [Suspect]
     Active Substance: METHYLPHENIDATE
     Indication: Distractibility
  4. ZOLPIDEM [Suspect]
     Active Substance: ZOLPIDEM TARTRATE
     Indication: Stress at work
     Dosage: 300 MG, DAILY
     Route: 065
  5. TRAMADOL [Suspect]
     Active Substance: TRAMADOL
     Indication: Stress at work
     Dosage: 1000 MG, DAILY
     Route: 065
  6. DIAZEPAM [Suspect]
     Active Substance: DIAZEPAM
     Indication: Stress at work
     Dosage: UNK (HIGH DOSE)
     Route: 065
  7. DIAZEPAM [Suspect]
     Active Substance: DIAZEPAM
     Dosage: 2 MG, DAILY
     Route: 065
  8. TRAMADOL [Concomitant]
     Active Substance: TRAMADOL
     Indication: Drug rehabilitation
     Dosage: UNKNOWN (TAPERING OFF)
     Route: 065
  9. TRAMADOL [Concomitant]
     Active Substance: TRAMADOL
     Indication: Drug dependence
     Dosage: 100 MG, BID
     Route: 065
  10. DIAZEPAM [Concomitant]
     Active Substance: DIAZEPAM
     Indication: Withdrawal syndrome
     Dosage: UNKNOWN (TAPERING OFF)
     Route: 065
  11. DIAZEPAM [Concomitant]
     Active Substance: DIAZEPAM
     Indication: Drug dependence
     Dosage: 10 MG, TID
     Route: 065
  12. FLUVOXAMINE [Concomitant]
     Active Substance: FLUVOXAMINE
     Indication: Drug rehabilitation
     Dosage: 100 MG, DAILY
     Route: 065
  13. FLUVOXAMINE [Concomitant]
     Active Substance: FLUVOXAMINE
     Indication: Drug dependence
  14. AMISULPRIDE [Concomitant]
     Active Substance: AMISULPRIDE
     Indication: Drug rehabilitation
     Dosage: 50 MG, BID
     Route: 065
  15. AMISULPRIDE [Concomitant]
     Active Substance: AMISULPRIDE
     Indication: Drug dependence

REACTIONS (2)
  - Condition aggravated [Recovered/Resolved]
  - Seizure [Unknown]
